FAERS Safety Report 6673241-0 (Version None)
Quarter: 2010Q1

REPORT INFORMATION
  Report Type: 
  Country: None (occurrence: None)
  Receive Date: 20100329
  Receipt Date: 20090916
  Transmission Date: 20100710
  Serious: Yes (Other)
  Sender: FDA-Public Use
  Company Number: 2009248732

PATIENT
  Age: 22 Year
  Sex: Male
  Weight: 118 kg

DRUGS (3)
  1. GEODON [Suspect]
     Indication: BIPOLAR I DISORDER
     Dosage: 160 MG DAILY, ORAL
     Route: 048
  2. DEPAKOTE - SOLW RELEASE (VALPROATE SEMISODIUM) [Concomitant]
  3. LAMICTAL [Concomitant]

REACTIONS (1)
  - OCULOGYRIC CRISIS [None]
